FAERS Safety Report 6089413-2 (Version None)
Quarter: 2009Q1

REPORT INFORMATION
  Report Type: 
  Country: None (occurrence: None)
  Receive Date: 20090224
  Receipt Date: 20090213
  Transmission Date: 20090719
  Serious: Yes (Other)
  Sender: FDA-Public Use
  Company Number: AU-ROCHE-614474

PATIENT
  Sex: Male

DRUGS (1)
  1. ISOTRETINOIN [Suspect]
     Indication: ACNE
     Route: 065

REACTIONS (5)
  - DRY SKIN [None]
  - INTRACRANIAL HYPOTENSION [None]
  - LIP DRY [None]
  - MENIERE'S DISEASE [None]
  - VISUAL IMPAIRMENT [None]
